FAERS Safety Report 9036046 (Version 1)
Quarter: 2013Q1

REPORT INFORMATION
  Report Type: Report from Study
  Country: US (occurrence: US)
  Receive Date: 20130129
  Receipt Date: 20130129
  Transmission Date: 20140127
  Serious: No
  Sender: FDA-Public Use
  Company Number: US-ABBOTT-12P-163-0910476-00

PATIENT
  Age: 43 Year
  Sex: Female

DRUGS (10)
  1. HUMIRA 40 MG/0.8 ML PEN [Suspect]
     Indication: COLITIS ULCERATIVE
     Dosage: LOADING DOSE
     Dates: start: 20120223, end: 20120223
  2. HUMIRA 40 MG/0.8 ML PEN [Suspect]
     Dates: start: 20120308
  3. IMURAN [Concomitant]
     Indication: PRODUCT USED FOR UNKNOWN INDICATION
  4. TOPROL XL [Concomitant]
     Indication: HYPERTENSION
     Dosage: DAILY
  5. LIPITOR [Concomitant]
     Indication: BLOOD CHOLESTEROL INCREASED
     Dosage: DAILY
  6. HYDROCHLOROTHIAZIDE [Concomitant]
     Indication: HYPERTENSION
     Dosage: DAILY
  7. REMERON [Concomitant]
     Indication: ANXIETY
     Dosage: DAILY
  8. ASACOL [Concomitant]
     Indication: PRODUCT USED FOR UNKNOWN INDICATION
     Dosage: 400MG X 3 TABLETS 3 TIMES DAILY= 3600MG
  9. LUNESTA [Concomitant]
     Indication: INSOMNIA
     Dosage: AT NIGHT
  10. HYDROCODONE [Concomitant]
     Indication: PAIN
     Dosage: 7.5-500MG

REACTIONS (5)
  - Fatigue [Recovering/Resolving]
  - Off label use [Unknown]
  - Nausea [Recovering/Resolving]
  - Injection site haemorrhage [Recovered/Resolved]
  - Injection site bruising [Recovered/Resolved]
